FAERS Safety Report 16642927 (Version 1)
Quarter: 2019Q3

REPORT INFORMATION
  Report Type: Spontaneous
  Country: US (occurrence: US)
  Receive Date: 20190728
  Receipt Date: 20190728
  Transmission Date: 20191004
  Serious: No
  Sender: FDA-Public Use
  Company Number: None

PATIENT
  Age: 38 Year
  Sex: Female

DRUGS (1)
  1. SPORT SUNSCREEN SPF 50 DAYLOGIC [Suspect]
     Active Substance: AVOBENZONE\HOMOSALATE\OCTISALATE\OCTOCRYLENE
     Indication: PROPHYLAXIS AGAINST SOLAR RADIATION
     Dosage: ?          OTHER STRENGTH:SPRAY;?
     Route: 061
     Dates: start: 20190501, end: 20190709

REACTIONS (2)
  - Application site pruritus [None]
  - Application site erosion [None]

NARRATIVE: CASE EVENT DATE: 20190501
